FAERS Safety Report 14781485 (Version 3)
Quarter: 2018Q2

REPORT INFORMATION
  Report Type: Spontaneous
  Country: HU (occurrence: HU)
  Receive Date: 20180419
  Receipt Date: 20180515
  Transmission Date: 20180711
  Serious: Yes (Other)
  Sender: FDA-Public Use
  Company Number: HU-BIOGEN-2018BI00557269

PATIENT
  Sex: Female

DRUGS (4)
  1. SILYMARIN [Concomitant]
     Active Substance: DIETARY SUPPLEMENT\HERBALS\MILK THISTLE
     Indication: PRODUCT USED FOR UNKNOWN INDICATION
     Route: 065
  2. AVONEX [Suspect]
     Active Substance: INTERFERON BETA-1A
     Indication: MULTIPLE SCLEROSIS
     Route: 065
     Dates: start: 20161013
  3. VITAMIN E [Concomitant]
     Active Substance: .ALPHA.-TOCOPHEROL
     Indication: PRODUCT USED FOR UNKNOWN INDICATION
     Route: 065
  4. AVONEX [Suspect]
     Active Substance: INTERFERON BETA-1A
     Route: 030

REACTIONS (11)
  - Pelvic pain [Unknown]
  - C-reactive protein increased [Unknown]
  - Multiple sclerosis relapse [Unknown]
  - Pain in extremity [Unknown]
  - Lhermitte^s sign [Unknown]
  - Musculoskeletal pain [Unknown]
  - Alanine aminotransferase increased [Recovered/Resolved]
  - Chromaturia [Unknown]
  - Blood immunoglobulin G increased [Unknown]
  - Autoimmune hepatitis [Unknown]
  - Aspartate aminotransferase increased [Recovered/Resolved]
